FAERS Safety Report 9119997 (Version 2)
Quarter: 2013Q1

REPORT INFORMATION
  Report Type: Spontaneous
  Country: US (occurrence: US)
  Receive Date: 20130226
  Receipt Date: 20130328
  Transmission Date: 20140127
  Serious: Yes (Hospitalization)
  Sender: FDA-Public Use
  Company Number: US-JNJFOC-20130212167

PATIENT
  Age: 46 Year
  Sex: Female

DRUGS (4)
  1. REMICADE [Suspect]
     Indication: COLITIS ULCERATIVE
     Route: 042
  2. REMICADE [Suspect]
     Indication: COLITIS ULCERATIVE
     Route: 042
     Dates: start: 20130131
  3. SODIUM CHLORIDE [Concomitant]
     Indication: FLUSHING
     Route: 065
     Dates: start: 20130131
  4. SODIUM CHLORIDE [Concomitant]
     Indication: FLUSHING
     Route: 065
     Dates: start: 20130131

REACTIONS (5)
  - Blister [Recovered/Resolved]
  - Adverse drug reaction [Recovered/Resolved]
  - Vomiting [Recovered/Resolved]
  - Nausea [Recovered/Resolved]
  - Rash generalised [Recovered/Resolved]
